FAERS Safety Report 14076260 (Version 2)
Quarter: 2017Q4

REPORT INFORMATION
  Report Type: Spontaneous
  Country: US (occurrence: US)
  Receive Date: 20171010
  Receipt Date: 20171026
  Transmission Date: 20180321
  Serious: Yes (Other)
  Sender: FDA-Public Use
  Company Number: US-AMGEN-USASP2017151469

PATIENT
  Age: 59 Year
  Sex: Female
  Weight: 50.79 kg

DRUGS (1)
  1. ENBREL [Suspect]
     Active Substance: ETANERCEPT
     Indication: RHEUMATOID ARTHRITIS
     Dosage: 50 MG, QWK
     Route: 058
     Dates: start: 20030101

REACTIONS (4)
  - Hip arthroplasty [Unknown]
  - Blood heavy metal increased [Unknown]
  - Device dislocation [Unknown]
  - Blood chromium increased [Unknown]

NARRATIVE: CASE EVENT DATE: 20170920
